FAERS Safety Report 5404768-7 (Version None)
Quarter: 2007Q3

REPORT INFORMATION
  Report Type: 
  Country: None (occurrence: None)
  Receive Date: 20070731
  Receipt Date: 20070720
  Transmission Date: 20080115
  Serious: Yes (Other)
  Sender: FDA-Public Use
  Company Number: CHPA2007US07888

PATIENT
  Age: 71 Year
  Sex: Female

DRUGS (2)
  1. NICOTINE [Suspect]
     Indication: SMOKING CESSATION THERAPY
     Dosage: 21 MG, QD, TRANSDERMAL
     Route: 062
     Dates: start: 20070716, end: 20070716
  2. LASIX [Concomitant]

REACTIONS (2)
  - DRUG INEFFECTIVE [None]
  - GENERALISED OEDEMA [None]
